FAERS Safety Report 5271837-4 (Version None)
Quarter: 2007Q1

REPORT INFORMATION
  Report Type: 
  Country: None (occurrence: None)
  Receive Date: 20070321
  Receipt Date: 20070309
  Transmission Date: 20070707
  Serious: Yes (Other)
  Sender: FDA-Public Use
  Company Number: US-PFIZER INC-2007019259

PATIENT
  Sex: Male

DRUGS (6)
  1. LIPITOR [Suspect]
     Indication: BLOOD CHOLESTEROL INCREASED
     Route: 048
  2. ACETYLSALICYLIC ACID SRT [Concomitant]
  3. FLOVENT [Concomitant]
  4. ZYRTEC [Concomitant]
  5. Q10 [Concomitant]
  6. L-CARNITINE [Concomitant]

REACTIONS (4)
  - DRY SKIN [None]
  - IRRITABLE BOWEL SYNDROME [None]
  - PARAESTHESIA [None]
  - PRURITUS GENERALISED [None]
